FAERS Safety Report 6391651-6 (Version None)
Quarter: 2009Q4

REPORT INFORMATION
  Report Type: 
  Country: None (occurrence: None)
  Receive Date: 20091005
  Receipt Date: 20090330
  Transmission Date: 20100525
  Serious: Yes (Hospitalization)
  Sender: FDA-Public Use
  Company Number: 001793

PATIENT
  Age: 45 Year
  Sex: Female

DRUGS (2)
  1. NEUPRO [Suspect]
     Dosage: 22 MG, 22 MG/24H TRANSDERMAL
     Route: 062
     Dates: start: 20090301
  2. STALEVO 100 [Concomitant]

REACTIONS (2)
  - FLUID RETENTION [None]
  - OEDEMA PERIPHERAL [None]
